FAERS Safety Report 9235690 (Version 3)
Quarter: 2013Q2

REPORT INFORMATION
  Report Type: Report from Study
  Country: PL (occurrence: PL)
  Receive Date: 20130417
  Receipt Date: 20130513
  Transmission Date: 20140414
  Serious: Yes (Hospitalization)
  Sender: FDA-Public Use
  Company Number: PL-JNJFOC-20130406809

PATIENT
  Age: 27 Year
  Sex: Male

DRUGS (5)
  1. RISPOLEPT CONSTA [Suspect]
     Indication: SCHIZOPHRENIA
     Route: 030
  2. RISPOLEPT CONSTA [Suspect]
     Indication: SCHIZOPHRENIA
     Route: 030
  3. FLUVOXAMINE [Suspect]
     Indication: PRODUCT USED FOR UNKNOWN INDICATION
     Route: 065
  4. AMISULPRIDE [Concomitant]
     Indication: SCHIZOPHRENIA
     Route: 065
  5. AMISULPRIDE [Concomitant]
     Indication: SCHIZOPHRENIA
     Route: 065

REACTIONS (8)
  - Schizophrenia [Unknown]
  - Withdrawal syndrome [Unknown]
  - Headache [Unknown]
  - Agitation [Unknown]
  - Anxiety [Unknown]
  - Tension [Unknown]
  - Irritability [Unknown]
  - Nervousness [Unknown]
